FAERS Safety Report 10023862 (Version 1)
Quarter: 2014Q1

REPORT INFORMATION
  Report Type: Report from Study
  Country: US (occurrence: US)
  Receive Date: 20140320
  Receipt Date: 20140320
  Transmission Date: 20141002
  Serious: Yes (Other)
  Sender: FDA-Public Use
  Company Number: US-JNJFOC-20140307449

PATIENT
  Sex: Female
  Weight: 72.58 kg

DRUGS (11)
  1. XARELTO [Suspect]
     Indication: THROMBOSIS PROPHYLAXIS
     Route: 048
  2. XARELTO [Suspect]
     Indication: THROMBOSIS PROPHYLAXIS
     Route: 048
     Dates: start: 201301, end: 2013
  3. WARFARIN [Suspect]
     Indication: PRODUCT USED FOR UNKNOWN INDICATION
     Route: 065
     Dates: start: 201303, end: 20140310
  4. LEVOTHYROXINE [Concomitant]
     Indication: THYROID DISORDER
     Dosage: EVERY MORNING
     Route: 048
  5. ONGLYZA [Concomitant]
     Indication: DIABETES MELLITUS
     Dosage: EVERY MORNING
     Route: 048
  6. METFORMIN [Concomitant]
     Indication: DIABETES MELLITUS
     Route: 048
     Dates: start: 2014
  7. ENALAPRIL [Concomitant]
     Indication: BLOOD PRESSURE
     Route: 048
  8. MULTAQ [Concomitant]
     Indication: CARDIAC DISORDER
     Route: 048
     Dates: start: 2013
  9. ALENDRONATE [Concomitant]
     Indication: OSTEOPOROSIS
     Route: 048
     Dates: start: 2013
  10. GABAPENTIN [Concomitant]
     Indication: NEUROPATHY PERIPHERAL
     Dosage: 100 MG TABLET/ CAPSULES ONCE AT NIGHT
     Route: 048
     Dates: start: 2012
  11. CRESTOR [Concomitant]
     Indication: BLOOD CHOLESTEROL
     Dosage: 10MG TABLET ONCE AT NIGHT
     Route: 048
     Dates: start: 2013

REACTIONS (1)
  - International normalised ratio increased [Recovered/Resolved]
